FAERS Safety Report 5939080-0 (Version None)
Quarter: 2008Q4

REPORT INFORMATION
  Report Type: 
  Country: None (occurrence: None)
  Receive Date: 20081103
  Receipt Date: 20081024
  Transmission Date: 20090506
  Serious: Yes (Life-Threatening, Disabling)
  Sender: FDA-Public Use
  Company Number: A0754110A

PATIENT
  Age: 47 Year
  Sex: Male
  Weight: 102 kg

DRUGS (6)
  1. ZYBAN [Suspect]
     Route: 048
  2. ASAPHEN [Concomitant]
     Route: 065
  3. BISOPROLOL FUMARATE [Concomitant]
     Route: 065
  4. COVERSYL [Concomitant]
     Route: 065
  5. LIPITOR [Concomitant]
     Route: 065
  6. PLAVIX [Concomitant]
     Route: 065

REACTIONS (6)
  - AFFECT LABILITY [None]
  - DEPRESSION [None]
  - HALLUCINATION [None]
  - JUDGEMENT IMPAIRED [None]
  - MALABSORPTION [None]
  - ROAD TRAFFIC ACCIDENT [None]
